FAERS Safety Report 8782097 (Version 2)
Quarter: 2012Q4

REPORT INFORMATION
  Report Type: 
  Country: US (occurrence: US)
  Receive Date: 20120913
  Receipt Date: 20121018
  Transmission Date: 20130627
  Serious: No
  Sender: FDA-Public Use
  Company Number: US-VERTEX PHARMACEUTICAL INC.-2012-020144

PATIENT
  Sex: Female
  Weight: 64 kg

DRUGS (3)
  1. VX-950 [Suspect]
     Indication: HEPATITIS C
     Dosage: UNK
     Route: 048
     Dates: start: 20120801
  2. PEGASYS [Concomitant]
     Indication: HEPATITIS C
     Dosage: 180 ?g, UNK
     Route: 058
     Dates: start: 20120801
  3. RIBAPAK [Concomitant]
     Indication: HEPATITIS C
     Dosage: 600 mg in AM, 400 mg in PM
     Route: 048
     Dates: start: 20120801

REACTIONS (2)
  - Gastrooesophageal reflux disease [Unknown]
  - Vomiting [Unknown]
